FAERS Safety Report 6783035-3 (Version None)
Quarter: 2010Q2

REPORT INFORMATION
  Report Type: 
  Country: None (occurrence: None)
  Receive Date: 20100622
  Receipt Date: 20100610
  Transmission Date: 20101027
  Serious: Yes (Other)
  Sender: FDA-Public Use
  Company Number: CA-BAYER-201025253NA

PATIENT
  Age: 20 Year
  Sex: Female
  Weight: 66 kg

DRUGS (1)
  1. YASMIN [Suspect]
     Indication: DRUG USE FOR UNKNOWN INDICATION
     Route: 048

REACTIONS (5)
  - BLINDNESS [None]
  - MIGRAINE [None]
  - MIGRAINE WITH AURA [None]
  - PAIN [None]
  - VOMITING [None]
